FAERS Safety Report 5450356-6 (Version None)
Quarter: 2007Q3

REPORT INFORMATION
  Report Type: 
  Country: None (occurrence: None)
  Receive Date: 20070912
  Receipt Date: 20070905
  Transmission Date: 20080115
  Serious: Yes (Other)
  Sender: FDA-Public Use
  Company Number: CN-PFIZER INC-2007073797

PATIENT
  Sex: Female

DRUGS (1)
  1. CAMPTOSAR [Suspect]
     Indication: NEOPLASM MALIGNANT
     Route: 042
     Dates: start: 20070801, end: 20070901

REACTIONS (2)
  - AKINESIA [None]
  - DIARRHOEA [None]
